FAERS Safety Report 18179532 (Version 4)
Quarter: 2020Q4

REPORT INFORMATION
  Report Type: Spontaneous
  Country: US (occurrence: US)
  Receive Date: 20200821
  Receipt Date: 20201126
  Transmission Date: 20210113
  Serious: No
  Sender: FDA-Public Use
  Company Number: US-HORIZON-TEP-1457-2020

PATIENT
  Age: 31 Year
  Sex: Female
  Weight: 57.6 kg

DRUGS (2)
  1. TEPEZZA [Suspect]
     Active Substance: TEPROTUMUMAB-TRBW
     Indication: TOXIC GOITRE
     Dosage: 577MG EVERY 3 WEEKS
     Route: 042
     Dates: start: 20200813
  2. METHIMAZOLE. [Concomitant]
     Active Substance: METHIMAZOLE
     Dosage: 5MG DAILY

REACTIONS (11)
  - Menstruation irregular [Recovered/Resolved]
  - Anxiety [Recovered/Resolved]
  - Muscle spasms [Not Recovered/Not Resolved]
  - Hypomenorrhoea [Recovered/Resolved]
  - Nausea [Recovering/Resolving]
  - Headache [Not Recovered/Not Resolved]
  - Dry skin [Unknown]
  - Abnormal faeces [Recovered/Resolved]
  - Amenorrhoea [Not Recovered/Not Resolved]
  - Fatigue [Not Recovered/Not Resolved]
  - Metrorrhagia [Unknown]

NARRATIVE: CASE EVENT DATE: 20200815
